FAERS Safety Report 20232533 (Version 1)
Quarter: 2021Q4

REPORT INFORMATION
  Report Type: Report from Study
  Country: US (occurrence: US)
  Receive Date: 20211227
  Receipt Date: 20211227
  Transmission Date: 20220303
  Serious: Yes (Other)
  Sender: FDA-Public Use
  Company Number: US-BAYER-2021A270422

PATIENT
  Age: 27 Year
  Sex: Female

DRUGS (2)
  1. ASPIRIN [Suspect]
     Active Substance: ASPIRIN
     Dosage: UNK
  2. CARVEDILOL [Concomitant]
     Active Substance: CARVEDILOL
     Dosage: 25 MG, BID

REACTIONS (4)
  - Nonreassuring foetal heart rate pattern [None]
  - Premature labour [None]
  - Maternal exposure during pregnancy [None]
  - Contraindicated product administered [None]
